FAERS Safety Report 7843054-2 (Version None)
Quarter: 2011Q4

REPORT INFORMATION
  Report Type: 
  Country: None (occurrence: None)
  Receive Date: 20111025
  Receipt Date: 20111019
  Transmission Date: 20120403
  Serious: Yes (Hospitalization)
  Sender: FDA-Public Use
  Company Number: FR-BAXTER-2011BH033280

PATIENT
  Age: 69 Year
  Sex: Female

DRUGS (8)
  1. METHOTREXATE [Suspect]
     Indication: T-CELL LYMPHOMA STAGE III
     Route: 037
     Dates: start: 20110706, end: 20110706
  2. HYDROCORTISONE [Suspect]
     Indication: T-CELL LYMPHOMA STAGE III
     Route: 042
     Dates: start: 20110706, end: 20110706
  3. PREDNISONE [Suspect]
     Indication: T-CELL LYMPHOMA STAGE III
     Route: 048
     Dates: start: 20110707, end: 20110710
  4. DOXORUBICIN HCL [Suspect]
     Indication: T-CELL LYMPHOMA STAGE III
     Route: 042
     Dates: start: 20110706, end: 20110706
  5. CYCLOPHOSPHAMIDE [Suspect]
     Indication: T-CELL LYMPHOMA STAGE III
     Route: 042
     Dates: start: 20110706, end: 20110706
  6. MABTHERA [Suspect]
     Indication: T-CELL LYMPHOMA STAGE III
     Route: 042
     Dates: start: 20110706, end: 20110706
  7. VINCRISTINE SULFATE [Suspect]
     Indication: T-CELL LYMPHOMA STAGE III
     Route: 042
     Dates: start: 20110706, end: 20110706
  8. METHYLPREDNISOLONE [Suspect]
     Indication: T-CELL LYMPHOMA STAGE III
     Route: 042
     Dates: start: 20110706, end: 20110706

REACTIONS (1)
  - CARDIOMYOPATHY [None]
